FAERS Safety Report 16939292 (Version 1)
Quarter: 2019Q4

REPORT INFORMATION
  Report Type: Spontaneous
  Country: US (occurrence: US)
  Receive Date: 20191021
  Receipt Date: 20191021
  Transmission Date: 20200122
  Serious: No
  Sender: FDA-Public Use
  Company Number: NVSC2019US010466

PATIENT
  Age: 24 Year
  Sex: Female

DRUGS (3)
  1. ADENOVIRUS TYPE 4 AND TYPE 7 VACCINE, LIVE, ORAL [Suspect]
     Active Substance: HUMAN ADENOVIRUS B SEROTYPE 7 STRAIN 55142\HUMAN ADENOVIRUS E SEROTYPE 4 STRAIN CL-68578
     Indication: PRODUCT USED FOR UNKNOWN INDICATION
     Route: 065
  2. BENZYLPENICILLIN [Suspect]
     Active Substance: PENICILLIN G
     Indication: PRODUCT USED FOR UNKNOWN INDICATION
     Route: 030
  3. HEPATITIS A VACCINE [Suspect]
     Active Substance: HEPATITIS A VIRUS STRAIN HM175 ANTIGEN (FORMALDEHYDE INACTIVATED)
     Indication: PRODUCT USED FOR UNKNOWN INDICATION
     Route: 065

REACTIONS (2)
  - Normal newborn [Unknown]
  - Maternal exposure during pregnancy [Unknown]
